APPROVED DRUG PRODUCT: SACUBITRIL AND VALSARTAN
Active Ingredient: SACUBITRIL; VALSARTAN
Strength: 49MG;51MG
Dosage Form/Route: TABLET;ORAL
Application: A213808 | Product #002 | TE Code: AB
Applicant: LUPIN INC
Approved: Jan 8, 2025 | RLD: No | RS: No | Type: RX